FAERS Safety Report 8289625-3 (Version None)
Quarter: 2012Q2

REPORT INFORMATION
  Report Type: 
  Country: None (occurrence: None)
  Receive Date: 20120417
  Receipt Date: 20120409
  Transmission Date: 20120825
  Serious: Yes (Other)
  Sender: FDA-Public Use
  Company Number: US-BAYER-2012-015841

PATIENT
  Age: 41 Year
  Sex: Female
  Weight: 66.213 kg

DRUGS (2)
  1. MIRENA [Suspect]
     Dosage: 20 MCG/24HR, CONT
     Route: 015
     Dates: start: 20120206
  2. MIRENA [Suspect]
     Indication: CONTRACEPTION
     Dosage: 20 MCG/24HR, CONT
     Route: 015
     Dates: start: 20120206, end: 20120206

REACTIONS (4)
  - ADNEXA UTERI MASS [None]
  - DISCOMFORT [None]
  - PROCEDURAL PAIN [None]
  - ABDOMINAL PAIN [None]
